FAERS Safety Report 9372819 (Version 2)
Quarter: 2013Q3

REPORT INFORMATION
  Report Type: Spontaneous
  Country: DE (occurrence: None)
  Receive Date: 20130610
  Receipt Date: 20130703
  Transmission Date: 20140515
  Serious: Yes (Other)
  Sender: FDA-Public Use
  Company Number: 0239014

PATIENT
  Age: 72 Year
  Sex: Male

DRUGS (2)
  1. TACHOSIL [Suspect]
     Indication: PROSTATIC OPERATION
     Dosage: (1 PATCH: 3X2.5CM BILATERAL)
     Dates: start: 20130422
  2. PRADAXA (DABIGATRAN) [Concomitant]

REACTIONS (2)
  - Post procedural haemorrhage [None]
  - Lymphocele [None]
